FAERS Safety Report 11048770 (Version 3)
Quarter: 2015Q4

REPORT INFORMATION
  Report Type: Spontaneous
  Country: US (occurrence: US)
  Receive Date: 20150420
  Receipt Date: 20151009
  Transmission Date: 20160304
  Serious: No
  Sender: FDA-Public Use
  Company Number: US-009507513-1504USA017096

PATIENT
  Sex: Male

DRUGS (12)
  1. TAMSULOSIN HYDROCHLORIDE. [Suspect]
     Active Substance: TAMSULOSIN HYDROCHLORIDE
     Indication: TYPE 2 DIABETES MELLITUS
  2. FINASTERIDE. [Suspect]
     Active Substance: FINASTERIDE
     Indication: PROSTATOMEGALY
     Dosage: 0.5 MG, UNKNOWN
     Route: 048
     Dates: start: 2012, end: 2015
  3. FINASTERIDE. [Suspect]
     Active Substance: FINASTERIDE
     Indication: TYPE 2 DIABETES MELLITUS
  4. FINASTERIDE. [Suspect]
     Active Substance: FINASTERIDE
     Indication: PROSTATOMEGALY
     Dosage: 5 MG, UNKNOWN
     Route: 048
     Dates: start: 20120529, end: 2015
  5. AVODART [Suspect]
     Active Substance: DUTASTERIDE
     Indication: PROSTATOMEGALY
     Dosage: 0.5 MG, UNKNOWN
     Route: 065
     Dates: start: 2012, end: 2015
  6. FINASTERIDE. [Suspect]
     Active Substance: FINASTERIDE
     Indication: TYPE 2 DIABETES MELLITUS
  7. FINASTERIDE. [Suspect]
     Active Substance: FINASTERIDE
     Indication: TYPE 2 DIABETES MELLITUS
  8. FLOMAX [Suspect]
     Active Substance: TAMSULOSIN HYDROCHLORIDE
     Indication: PROSTATOMEGALY
     Dosage: UNK, UNKNOWN
     Route: 065
     Dates: start: 2012, end: 2015
  9. FINASTERIDE. [Suspect]
     Active Substance: FINASTERIDE
     Indication: PROSTATOMEGALY
     Dosage: 5 MG, UNKNOWN
     Route: 048
     Dates: start: 20120504
  10. AVODART [Suspect]
     Active Substance: DUTASTERIDE
     Indication: TYPE 2 DIABETES MELLITUS
  11. TAMSULOSIN HYDROCHLORIDE. [Suspect]
     Active Substance: TAMSULOSIN HYDROCHLORIDE
     Indication: PROSTATOMEGALY
     Dosage: UNK UNK, UNKNOWN
     Route: 065
     Dates: start: 2012, end: 2015
  12. FLOMAX [Suspect]
     Active Substance: TAMSULOSIN HYDROCHLORIDE
     Indication: TYPE 2 DIABETES MELLITUS

REACTIONS (7)
  - Sexual dysfunction [Not Recovered/Not Resolved]
  - Loss of libido [Unknown]
  - Anxiety [Not Recovered/Not Resolved]
  - Emotional distress [Not Recovered/Not Resolved]
  - Anorgasmia [Unknown]
  - Erectile dysfunction [Not Recovered/Not Resolved]
  - Depression [Not Recovered/Not Resolved]

NARRATIVE: CASE EVENT DATE: 201206
